FAERS Safety Report 9289618 (Version 2)
Quarter: 2013Q2

REPORT INFORMATION
  Report Type: Spontaneous
  Country: AR (occurrence: AR)
  Receive Date: 20130515
  Receipt Date: 20130530
  Transmission Date: 20140414
  Serious: Yes (Death)
  Sender: FDA-Public Use
  Company Number: AR-BIOGENIDEC-2013BI042233

PATIENT
  Age: 36 Year
  Sex: Female

DRUGS (2)
  1. AVONEX [Suspect]
     Indication: MULTIPLE SCLEROSIS
     Route: 030
     Dates: start: 200902
  2. GLATIRAMER [Concomitant]
     Indication: MULTIPLE SCLEROSIS

REACTIONS (1)
  - Brain neoplasm [Fatal]
